FAERS Safety Report 8082008-0 (Version None)
Quarter: 2012Q1

REPORT INFORMATION
  Report Type: 
  Country: None (occurrence: None)
  Receive Date: 20120130
  Receipt Date: 20120120
  Transmission Date: 20120608
  Serious: Yes (Hospitalization, Other)
  Sender: FDA-Public Use
  Company Number: PHHY2012AU007142

PATIENT
  Age: 47 Year
  Sex: Male

DRUGS (5)
  1. VENLAFAXINE [Suspect]
  2. BACLOFEN [Suspect]
     Dosage: 80 MG, UNK
  3. BACLOFEN [Suspect]
     Indication: ALCOHOLISM
     Dosage: 30 MG, DAILY
  4. DIAZEPAM [Suspect]
  5. BUPRENORPHINE [Suspect]

REACTIONS (6)
  - HYPERHIDROSIS [None]
  - DISORIENTATION [None]
  - CIRCULATORY COLLAPSE [None]
  - ATAXIA [None]
  - DIZZINESS [None]
  - OVERDOSE [None]
